FAERS Safety Report 20290108 (Version 1)
Quarter: 2022Q1

REPORT INFORMATION
  Report Type: Spontaneous
  Country: US (occurrence: US)
  Receive Date: 20220104
  Receipt Date: 20220104
  Transmission Date: 20220423
  Serious: Yes (Other)
  Sender: FDA-Public Use
  Company Number: US-AMGEN-USASP2021208369

PATIENT

DRUGS (4)
  1. FILGRASTIM [Suspect]
     Active Substance: FILGRASTIM
     Indication: Haematopoietic stem cell mobilisation
     Dosage: 10 MICROGRAM/KILOGRAM, QD (STARTING DAY 14 UNTIL COLLECTION OF APPROX. 5 X 10^6 CD34+ CELIS/KG)
     Route: 065
  2. MELPHALAN [Concomitant]
     Active Substance: MELPHALAN
     Indication: Haematopoietic stem cell mobilisation
     Dosage: 100 MILLIGRAM/SQ. METER, QD (ON DAYS -2 AND -1)
     Route: 042
  3. ETOPOSIDE [Concomitant]
     Active Substance: ETOPOSIDE
     Indication: Acute lymphocytic leukaemia
     Dosage: 10 MILLIGRAM/SQ. METER, QD
     Route: 042
  4. CYTARABINE [Concomitant]
     Active Substance: CYTARABINE
     Indication: Acute lymphocytic leukaemia
     Dosage: 2 GRAM PER SQUARE METRE (EVERY 12 HOURS FOR 8 DOSES)
     Route: 042

REACTIONS (2)
  - Acute lymphocytic leukaemia recurrent [Unknown]
  - Thrombocytopenia [Unknown]
